FAERS Safety Report 5264960-1 (Version None)
Quarter: 2007Q1

REPORT INFORMATION
  Report Type: 
  Country: None (occurrence: None)
  Receive Date: 20070314
  Receipt Date: 20070302
  Transmission Date: 20070707
  Serious: Yes (Hospitalization)
  Sender: FDA-Public Use
  Company Number: 2007UW04426

PATIENT
  Age: 25 Year
  Sex: Female

DRUGS (7)
  1. NEXIUM [Suspect]
     Indication: HIATUS HERNIA
     Route: 048
  2. NEXIUM [Suspect]
     Dosage: 120 TO 160 MG
     Route: 048
  3. PANTOPRAZOLE SODIUM [Concomitant]
     Indication: GASTROOESOPHAGEAL REFLUX DISEASE
  4. LOSEC [Concomitant]
     Indication: GASTROOESOPHAGEAL REFLUX DISEASE
     Route: 048
  5. DEPO-PROVERA [Concomitant]
     Indication: CONTRACEPTION
     Dosage: Q10-13 WEEKS
  6. DOMPERIDONE [Concomitant]
     Indication: STOMACH DISCOMFORT
     Route: 048
     Dates: start: 20070228
  7. DOMPERIDONE [Concomitant]
     Route: 048
     Dates: start: 20061001, end: 20061101

REACTIONS (5)
  - CYSTITIS [None]
  - DIZZINESS [None]
  - DRUG INEFFECTIVE [None]
  - INFLUENZA LIKE ILLNESS [None]
  - REFLUX OESOPHAGITIS [None]
